FAERS Safety Report 15456738 (Version 2)
Quarter: 2018Q4

REPORT INFORMATION
  Report Type: Spontaneous
  Country: US (occurrence: US)
  Receive Date: 20181002
  Receipt Date: 20181104
  Transmission Date: 20190204
  Serious: Yes (Other)
  Sender: FDA-Public Use
  Company Number: US-PFIZER INC-2018390527

PATIENT
  Age: 48 Year
  Sex: Female
  Weight: 63.39 kg

DRUGS (11)
  1. LYRICA [Concomitant]
     Active Substance: PREGABALIN
     Indication: SPERMATOZOA PROGRESSIVE MOTILITY ABNORMAL
  2. PRAZOSIN HCL [Suspect]
     Active Substance: PRAZOSIN HYDROCHLORIDE
     Indication: NIGHTMARE
     Dosage: 1 MG, 1X/DAY(1MG CAPSULE BY MOUTH AT BEDTIME)
     Route: 048
     Dates: start: 20180920
  3. LYRICA [Concomitant]
     Active Substance: PREGABALIN
     Indication: SEIZURE
     Dosage: 100 MG, 2X/DAY
     Dates: start: 201701
  4. FLUDROCORTISONE [Concomitant]
     Active Substance: FLUDROCORTISONE
     Indication: BONE TUBERCULOSIS
     Dosage: .2 MG, DAILY
     Dates: start: 2015
  5. LYRICA [Concomitant]
     Active Substance: PREGABALIN
     Indication: NEURALGIA
  6. ATIVAN [Concomitant]
     Active Substance: LORAZEPAM
     Indication: ANXIETY
     Dosage: UNK  (2MG TABS TAKES 1/4 OF TAB)
     Dates: start: 2016
  7. ATIVAN [Concomitant]
     Active Substance: LORAZEPAM
     Indication: SEIZURE
  8. PRAZOSIN HCL [Suspect]
     Active Substance: PRAZOSIN HYDROCHLORIDE
     Indication: POST-TRAUMATIC STRESS DISORDER
  9. LAMICTAL [Concomitant]
     Active Substance: LAMOTRIGINE
     Indication: SEIZURE
     Dosage: 100 MG, 2X/DAY
     Dates: start: 201801
  10. REGLAN [METOCLOPRAMIDE] [Concomitant]
     Indication: OESOPHAGEAL MOTILITY DISORDER
     Dosage: UNK
     Dates: start: 2015
  11. BUTALBITAL, ACETAMINOPHEN, AND CAFFEINE [Concomitant]
     Active Substance: ACETAMINOPHEN\BUTALBITAL\CAFFEINE
     Indication: MIGRAINE
     Dosage: UNK ([CAFFEINE: 40 MG]/[ACETAMINOPHEN: 325MG]/[BUTALBITAL: 50MG]), AS NEEDED
     Dates: start: 2016

REACTIONS (3)
  - Rash [Not Recovered/Not Resolved]
  - Urticaria [Not Recovered/Not Resolved]
  - Peripheral swelling [Not Recovered/Not Resolved]

NARRATIVE: CASE EVENT DATE: 201809
